FAERS Safety Report 18182021 (Version 1)
Quarter: 2020Q3

REPORT INFORMATION
  Report Type: Spontaneous
  Country: US (occurrence: US)
  Receive Date: 20200821
  Receipt Date: 20200821
  Transmission Date: 20201103
  Serious: Yes (Hospitalization)
  Sender: FDA-Public Use
  Company Number: US-JNJFOC-20200823559

PATIENT
  Age: 50 Year
  Sex: Male

DRUGS (2)
  1. INVOKANA [Suspect]
     Active Substance: CANAGLIFLOZIN
     Indication: HYPERGLYCAEMIA
  2. INVOKANA [Suspect]
     Active Substance: CANAGLIFLOZIN
     Indication: TYPE 2 DIABETES MELLITUS
     Route: 048
     Dates: start: 20160216

REACTIONS (4)
  - Toe amputation [Unknown]
  - Gangrene [Recovering/Resolving]
  - Cellulitis [Recovering/Resolving]
  - Osteomyelitis chronic [Recovering/Resolving]

NARRATIVE: CASE EVENT DATE: 201603
